FAERS Safety Report 6839333-8 (Version None)
Quarter: 2010Q3

REPORT INFORMATION
  Report Type: 
  Country: None (occurrence: None)
  Receive Date: 20100709
  Receipt Date: 20100623
  Transmission Date: 20110219
  Serious: Yes (Hospitalization)
  Sender: FDA-Public Use
  Company Number: 2010MA000155

PATIENT
  Age: 76 Year
  Sex: Female

DRUGS (12)
  1. IBUPROFEN [Suspect]
     Indication: PAIN
     Dosage: 200 MG; QD; PO
     Route: 048
  2. POTASSIUM CHLORIDE [Suspect]
     Indication: HYPOKALAEMIA
     Dosage: 1 DF, QD; PO
     Route: 048
  3. OXYBUTYNIN CHLORIDE [Concomitant]
  4. VITAMIN B [Concomitant]
  5. FOLIC ACID [Concomitant]
  6. AMILORIDE HYDROCHLORIDE AND HYDROCHLOROTHIAZIDE [Concomitant]
  7. PERINDOPRIL [Concomitant]
  8. CIMETIDINE [Concomitant]
  9. NICOTINAMIDE [Concomitant]
  10. THEOPHYLLINE [Concomitant]
  11. LOPERAMIDE [Concomitant]
  12. PREV MEDS - UNKNOWN [Concomitant]

REACTIONS (8)
  - ABDOMINAL PAIN [None]
  - ATRIAL FIBRILLATION [None]
  - DIARRHOEA [None]
  - DYSPEPSIA [None]
  - FAECES DISCOLOURED [None]
  - HYPOTENSION [None]
  - UPPER GASTROINTESTINAL HAEMORRHAGE [None]
  - VOMITING [None]
